FAERS Safety Report 23957038 (Version 1)
Quarter: 2024Q2

REPORT INFORMATION
  Report Type: Report from Study
  Country: FR (occurrence: FR)
  Receive Date: 20240610
  Receipt Date: 20240610
  Transmission Date: 20240716
  Serious: Yes (Life-Threatening, Other)
  Sender: FDA-Public Use
  Company Number: FR-PFIZER INC-PV202400072798

PATIENT

DRUGS (5)
  1. SPIRONOLACTONE [Interacting]
     Active Substance: SPIRONOLACTONE
     Indication: Systemic scleroderma
     Dosage: UNK
  2. AMIODARONE [Interacting]
     Active Substance: AMIODARONE
     Indication: Systemic scleroderma
     Dosage: UNK
  3. FUROSEMIDE [Interacting]
     Active Substance: FUROSEMIDE
     Indication: Systemic scleroderma
     Dosage: UNK
  4. PREDNISONE [Interacting]
     Active Substance: PREDNISONE
     Indication: Systemic scleroderma
     Dosage: UNK
  5. POTASSIUM [Interacting]
     Active Substance: POTASSIUM
     Indication: Systemic scleroderma
     Dosage: UNK

REACTIONS (3)
  - Cardiac arrest [Unknown]
  - Ventricular arrhythmia [Unknown]
  - Drug interaction [Unknown]
